FAERS Safety Report 8299781-9 (Version None)
Quarter: 2012Q2

REPORT INFORMATION
  Report Type: 
  Country: None (occurrence: None)
  Receive Date: 20120419
  Receipt Date: 20120419
  Transmission Date: 20120825
  Serious: Yes (Life-Threatening, Hospitalization, Other)
  Sender: FDA-Public Use
  Company Number: None

PATIENT
  Age: 29 Year
  Sex: Male
  Weight: 63.5 kg

DRUGS (1)
  1. CARBAMAZEPINE [Suspect]
     Indication: TRIGEMINAL NEURALGIA
     Dosage: 200.0 MG
     Route: 048
     Dates: start: 20120404, end: 20120417

REACTIONS (8)
  - OROPHARYNGEAL PAIN [None]
  - BODY TEMPERATURE INCREASED [None]
  - PURULENT DISCHARGE [None]
  - STEVENS-JOHNSON SYNDROME [None]
  - TOXIC EPIDERMAL NECROLYSIS [None]
  - TONGUE DISCOLOURATION [None]
  - CHAPPED LIPS [None]
  - LIP SWELLING [None]
